FAERS Safety Report 9201628 (Version 1)
Quarter: 2013Q1

REPORT INFORMATION
  Report Type: Spontaneous
  Country: US (occurrence: None)
  Receive Date: 20130329
  Receipt Date: 20130329
  Transmission Date: 20140127
  Serious: Yes (Other)
  Sender: FDA-Public Use
  Company Number: None

PATIENT
  Age: 36 Year
  Sex: Male
  Weight: 115.9 kg

DRUGS (1)
  1. WARFARIN [Suspect]
     Indication: PULMONARY EMBOLISM
     Dosage: WARFARIN  DAILY  PO
     Route: 048
     Dates: start: 2004

REACTIONS (2)
  - Product substitution issue [None]
  - Product quality issue [None]
